FAERS Safety Report 4611740-3 (Version None)
Quarter: 2005Q2

REPORT INFORMATION
  Report Type: 
  Country: None (occurrence: None)
  Receive Date: 20050311
  Receipt Date: 20041214
  Transmission Date: 20051028
  Serious: No
  Sender: FDA-Public Use
  Company Number: 2004-BP-13728BP

PATIENT
  Age: 79 Year
  Sex: Female

DRUGS (6)
  1. SPIRIVA [Suspect]
     Indication: CHRONIC OBSTRUCTIVE PULMONARY DISEASE
     Dosage: 18 MCG (18 MCG, CAPSULE OD), IH
     Route: 055
     Dates: start: 20041210
  2. SPIRIVA [Suspect]
     Dates: start: 20041030, end: 20041129
  3. .......... [Concomitant]
  4. ALBUTEROL [Concomitant]
  5. XALATAN [Concomitant]
  6. SOMA [Concomitant]

REACTIONS (2)
  - BRONCHITIS [None]
  - INCREASED UPPER AIRWAY SECRETION [None]
